FAERS Safety Report 9174937 (Version 4)
Quarter: 2013Q3

REPORT INFORMATION
  Report Type: Spontaneous
  Country: US (occurrence: US)
  Receive Date: 20130320
  Receipt Date: 20130821
  Transmission Date: 20140515
  Serious: Yes (Hospitalization, Other)
  Sender: FDA-Public Use
  Company Number: US-GLAXOSMITHKLINE-A0973687A

PATIENT
  Age: 31 Year
  Sex: Female

DRUGS (3)
  1. FLOLAN [Suspect]
     Indication: PULMONARY ARTERIAL HYPERTENSION
     Dosage: 33NGKM CONTINUOUS
     Route: 042
     Dates: start: 20100104
  2. REVATIO [Concomitant]
  3. COUMADIN [Concomitant]

REACTIONS (7)
  - Pulmonary hypertension [Recovered/Resolved]
  - Device breakage [Recovered/Resolved]
  - Device related infection [Recovered/Resolved]
  - Lethargy [Recovering/Resolving]
  - Headache [Recovering/Resolving]
  - Back pain [Recovering/Resolving]
  - Medical device complication [Recovered/Resolved]
